FAERS Safety Report 5009542-1 (Version None)
Quarter: 2006Q2

REPORT INFORMATION
  Report Type: 
  Country: None (occurrence: None)
  Receive Date: 20060522
  Receipt Date: 20060509
  Transmission Date: 20061013
  Serious: Yes (Other)
  Sender: FDA-Public Use
  Company Number: 2006046220

PATIENT
  Age: 75 Year
  Sex: Male

DRUGS (2)
  1. LIPITOR [Suspect]
     Indication: DYSLIPIDAEMIA
     Dosage: 1 IN 1 D, ORAL
     Route: 048
     Dates: start: 20050101, end: 20060101
  2. CARDURA [Suspect]
     Indication: PROSTATIC DISORDER
     Dosage: 1 IN 1 D, ORAL
     Route: 048
     Dates: start: 20050101, end: 20060101

REACTIONS (3)
  - BLOOD CHOLESTEROL INCREASED [None]
  - GASTROINTESTINAL NEOPLASM [None]
  - PROTHROMBIN TIME SHORTENED [None]
